FAERS Safety Report 6309960-5 (Version None)
Quarter: 2009Q3

REPORT INFORMATION
  Report Type: 
  Country: None (occurrence: None)
  Receive Date: 20090814
  Receipt Date: 20090806
  Transmission Date: 20100115
  Serious: Yes (Life-Threatening)
  Sender: FDA-Public Use
  Company Number: FR-WYE-G04199609

PATIENT
  Age: 39 Year
  Sex: Male

DRUGS (3)
  1. EFFEXOR [Suspect]
     Dosage: OVERDOSE AMOUNT WAS UNKNOWN
     Route: 048
     Dates: start: 20090629, end: 20090629
  2. PAROXETINE HCL [Interacting]
     Dosage: OVERDOSE AMOUNT WAS UNKNOWN
     Route: 048
     Dates: start: 20090629, end: 20090629
  3. MOCLAMINE [Interacting]
     Dosage: OVERDOSE AMOUNT WAS UNKNOWN
     Route: 048
     Dates: start: 20090629, end: 20090629

REACTIONS (6)
  - DRUG INTERACTION [None]
  - HYPERTHERMIA MALIGNANT [None]
  - MULTIPLE DRUG OVERDOSE INTENTIONAL [None]
  - SALIVARY HYPERSECRETION [None]
  - SEROTONIN SYNDROME [None]
  - SUICIDE ATTEMPT [None]
